FAERS Safety Report 26142996 (Version 1)
Quarter: 2025Q4

REPORT INFORMATION
  Report Type: Spontaneous
  Country: US (occurrence: US)
  Receive Date: 20251211
  Receipt Date: 20251211
  Transmission Date: 20260118
  Serious: No
  Sender: ADVANZ PHARMA
  Company Number: US-ADVANZ PHARMA-202512010633

PATIENT

DRUGS (3)
  1. HYDROXYCHLOROQUINE SULFATE [Suspect]
     Active Substance: HYDROXYCHLOROQUINE SULFATE
     Indication: Product used for unknown indication
     Dosage: UNK
     Route: 065
  2. LUPKYNIS [Suspect]
     Active Substance: VOCLOSPORIN
     Indication: Lupus nephritis
     Dosage: 23.7 MG, BID (SOFTGEL CAPSULE)
     Route: 048
     Dates: start: 20250312
  3. LUPKYNIS [Suspect]
     Active Substance: VOCLOSPORIN
     Dosage: 23.7 MG, BID (SOFTGEL CAPSULE)
     Route: 048
     Dates: start: 20250313

REACTIONS (3)
  - Skin discolouration [Unknown]
  - Abdominal discomfort [Unknown]
  - Blood pressure increased [Unknown]
